FAERS Safety Report 12964453 (Version 1)
Quarter: 2016Q4

REPORT INFORMATION
  Report Type: Spontaneous
  Country: US (occurrence: US)
  Receive Date: 20161122
  Receipt Date: 20161122
  Transmission Date: 20170207
  Serious: Yes (Hospitalization)
  Sender: FDA-Public Use
  Company Number: US-IMPAX LABORATORIES, INC-2016-IPXL-02096

PATIENT
  Age: 17 Year
  Sex: Female

DRUGS (2)
  1. BACLOFEN. [Suspect]
     Active Substance: BACLOFEN
     Dosage: ADDITIONAL DOSE
     Route: 048
  2. BACLOFEN. [Suspect]
     Active Substance: BACLOFEN
     Indication: CEREBRAL PALSY
     Dosage: 148 MCG/DAY AT CONCENTRATION 2000 MCG/DAY
     Route: 037

REACTIONS (8)
  - Pruritus [Unknown]
  - Discomfort [Unknown]
  - Muscle spasticity [Unknown]
  - Irritability [Unknown]
  - Confusional state [Unknown]
  - Pyrexia [Unknown]
  - Agitation [Unknown]
  - Drug withdrawal syndrome [Unknown]
